FAERS Safety Report 21796356 (Version 1)
Quarter: 2022Q4

REPORT INFORMATION
  Report Type: Spontaneous
  Country: JP (occurrence: JP)
  Receive Date: 20221229
  Receipt Date: 20221229
  Transmission Date: 20230113
  Serious: Yes (Other)
  Sender: FDA-Public Use
  Company Number: JP-ALLERGAN-2236972US

PATIENT
  Sex: Male

DRUGS (10)
  1. ALPHAGAN P [Suspect]
     Active Substance: BRIMONIDINE TARTRATE
     Indication: Glaucoma
     Dosage: 2 GTT, QD
     Route: 047
  2. ALPHAGAN P [Suspect]
     Active Substance: BRIMONIDINE TARTRATE
     Dosage: UNK
  3. FLUOROMETHOLONE [Concomitant]
     Active Substance: FLUOROMETHOLONE
     Indication: Corneal opacity
     Dosage: 2 GTT, BID
     Route: 047
     Dates: start: 20180118
  4. BESTRON FOR OPHTHALMIC 0.5% [Concomitant]
     Indication: Infection prophylaxis
     Dosage: 4 DROP/DAY
     Dates: start: 20180118, end: 20180315
  5. PIRENOXINE [Concomitant]
     Active Substance: PIRENOXINE
     Dosage: 1 GTT
  6. CYANOCOBALAMIN [Concomitant]
     Active Substance: CYANOCOBALAMIN
     Indication: Asthenopia
     Dosage: 1 GTT
  7. BETAMETHASONE SODIUM PHOSPHATE [Concomitant]
     Active Substance: BETAMETHASONE SODIUM PHOSPHATE
     Indication: Antiinflammatory therapy
     Dosage: 4 DROP/DAY
     Dates: start: 20181209, end: 20190117
  8. LEVOFLOXACIN HEMIHYDRATE [Concomitant]
     Active Substance: LEVOFLOXACIN
     Indication: Infection prophylaxis
     Dosage: 4 DROP/DAY
     Dates: start: 20181209, end: 20190117
  9. VALTREX [Concomitant]
     Active Substance: VALACYCLOVIR HYDROCHLORIDE
     Dosage: 6 DOSAGE FORM/DAY
     Route: 048
  10. LATANOPROST [Concomitant]
     Active Substance: LATANOPROST
     Indication: Ocular hypertension
     Dosage: 1 DROP/DAY
     Route: 047

REACTIONS (3)
  - Corneal opacity [Recovered/Resolved with Sequelae]
  - Blepharitis [Recovered/Resolved]
  - Conjunctival hyperaemia [Recovering/Resolving]

NARRATIVE: CASE EVENT DATE: 20181206
